FAERS Safety Report 8421174-1 (Version None)
Quarter: 2012Q2

REPORT INFORMATION
  Report Type: 
  Country: None (occurrence: None)
  Receive Date: 20120608
  Receipt Date: 20120604
  Transmission Date: 20120825
  Serious: Yes (Death)
  Sender: FDA-Public Use
  Company Number: US-CELGENEUS-163-21880-12060540

PATIENT
  Sex: Male

DRUGS (6)
  1. REVLIMID [Suspect]
     Dosage: 25 MILLIGRAM
     Route: 048
     Dates: start: 20120301
  2. AMLODIPINE BESYLATE [Concomitant]
     Route: 065
  3. HYDROCODONE BITARTRATE + ACETAMINOPHEN [Concomitant]
     Route: 065
  4. VITAMIN B COMPLEX CAP [Concomitant]
     Route: 065
  5. AZOR [Concomitant]
     Route: 065
  6. ALBUTEROL SULFATE [Concomitant]
     Route: 065

REACTIONS (1)
  - DEATH [None]
